FAERS Safety Report 24772052 (Version 1)
Quarter: 2024Q4

REPORT INFORMATION
  Report Type: Spontaneous
  Country: US (occurrence: US)
  Receive Date: 20241224
  Receipt Date: 20241224
  Transmission Date: 20250115
  Serious: No
  Sender: SANOFI AVENTIS
  Company Number: US-SA-2024SA378436

PATIENT
  Sex: Female

DRUGS (7)
  1. DUPIXENT [Suspect]
     Active Substance: DUPILUMAB
     Indication: Asthma
     Dosage: 300 MG, QOW
     Route: 058
  2. ALPRAZOLAM [Concomitant]
     Active Substance: ALPRAZOLAM
  3. EPINEPHRINE [Concomitant]
     Active Substance: EPINEPHRINE
  4. IPRATROPIUM [Concomitant]
     Active Substance: IPRATROPIUM
  5. PAXLOVID [Concomitant]
     Active Substance: NIRMATRELVIR\RITONAVIR
  6. TRESIBA [Concomitant]
     Active Substance: INSULIN DEGLUDEC
  7. FIASP [Concomitant]
     Active Substance: INSULIN ASPART

REACTIONS (2)
  - Cough [Not Recovered/Not Resolved]
  - Back pain [Not Recovered/Not Resolved]
